FAERS Safety Report 24287360 (Version 1)
Quarter: 2024Q3

REPORT INFORMATION
  Report Type: Spontaneous
  Country: US (occurrence: None)
  Receive Date: 20240904
  Receipt Date: 20240904
  Transmission Date: 20241017
  Serious: Yes (Death)
  Sender: Public
  Company Number: None

PATIENT
  Sex: Female

DRUGS (11)
  1. CAPECITABINE [Suspect]
     Active Substance: CAPECITABINE
     Indication: Breast cancer female
     Route: 048
  2. ACETAMINOPHEN [Concomitant]
     Active Substance: ACETAMINOPHEN
  3. ALLEGRA ALRG [Concomitant]
  4. AMITRIPTYLINE [Concomitant]
     Active Substance: AMITRIPTYLINE
  5. AMLODIPINE [Concomitant]
     Active Substance: AMLODIPINE BESYLATE
  6. ANASTROZOLE [Concomitant]
     Active Substance: ANASTROZOLE
  7. ATENOLOL [Concomitant]
     Active Substance: ATENOLOL
  8. ATIVAN [Concomitant]
     Active Substance: LORAZEPAM
  9. BUDESONIDE [Concomitant]
     Active Substance: BUDESONIDE
  10. CARDURA [Concomitant]
     Active Substance: DOXAZOSIN MESYLATE
  11. COMBIGAN [Concomitant]
     Active Substance: BRIMONIDINE TARTRATE\TIMOLOL MALEATE

REACTIONS (1)
  - Death [None]
